FAERS Safety Report 4420337-X (Version None)
Quarter: 2004Q3

REPORT INFORMATION
  Report Type: 
  Country: None (occurrence: None)
  Receive Date: 20040804
  Receipt Date: 20040726
  Transmission Date: 20050211
  Serious: Yes (Death)
  Sender: FDA-Public Use
  Company Number: DE-JNJFOC-20040707318

PATIENT
  Age: 79 Year
  Sex: Male

DRUGS (21)
  1. LEVOFLOXACIN [Suspect]
     Indication: PNEUMONIA
     Dosage: INTRAVENOUS
     Route: 042
     Dates: start: 20030615, end: 20030616
  2. LEVOFLOXACIN [Suspect]
     Indication: PNEUMONIA
     Dosage: ORAL
     Route: 048
     Dates: start: 20030617, end: 20030624
  3. LASIX [Concomitant]
  4. HYTRIN [Concomitant]
  5. ADVAIR (SERETIDE MITE) [Concomitant]
  6. K-DUR 10 [Concomitant]
  7. THEOPHYLLINE [Concomitant]
  8. SOLU-MEDROL [Concomitant]
  9. SODIUM CHLORIDE 0.9% [Concomitant]
  10. PEPCID [Concomitant]
  11. NITRO-DUR [Concomitant]
  12. COLACE (DOCUSATE SODIUM) [Concomitant]
  13. PREDNISONE [Concomitant]
  14. ALBUTEROL [Concomitant]
  15. ATROVENT [Concomitant]
  16. LANOXIN [Concomitant]
  17. RESTORIL [Concomitant]
  18. XOPENEX [Concomitant]
  19. TUSSIONEX (TESSIONEX ^LABQUIFAR^) [Concomitant]
  20. LOVENOX [Concomitant]
  21. LEVAQUIN [Concomitant]

REACTIONS (2)
  - CHRONIC OBSTRUCTIVE AIRWAYS DISEASE EXACERBATED [None]
  - RESPIRATORY ARREST [None]
